FAERS Safety Report 13530385 (Version 1)
Quarter: 2017Q2

REPORT INFORMATION
  Report Type: Spontaneous
  Country: US (occurrence: US)
  Receive Date: 20170509
  Receipt Date: 20170509
  Transmission Date: 20170830
  Serious: Yes (Hospitalization)
  Sender: FDA-Public Use
  Company Number: None

PATIENT
  Age: 60 Year
  Sex: Female

DRUGS (15)
  1. FOLIC ACID. [Concomitant]
     Active Substance: FOLIC ACID
  2. PREVACID [Concomitant]
     Active Substance: LANSOPRAZOLE
  3. METHOTREXATE. [Concomitant]
     Active Substance: METHOTREXATE
  4. SERTRALINE [Concomitant]
     Active Substance: SERTRALINE HYDROCHLORIDE
  5. UPTRAVI [Concomitant]
     Active Substance: SELEXIPAG
  6. COQ10 [Concomitant]
     Active Substance: UBIDECARENONE
  7. METOPROLOL. [Concomitant]
     Active Substance: METOPROLOL
  8. VITAMIN D3 [Concomitant]
     Active Substance: CHOLECALCIFEROL
  9. DIGOXIN. [Concomitant]
     Active Substance: DIGOXIN
  10. TRAZODONE [Concomitant]
     Active Substance: TRAZODONE HYDROCHLORIDE
  11. SILDENAFIL. [Suspect]
     Active Substance: SILDENAFIL
     Indication: ESSENTIAL HYPERTENSION
     Route: 048
     Dates: start: 20170211
  12. DESYREL [Concomitant]
     Active Substance: TRAZODONE HYDROCHLORIDE
  13. IMURAN [Concomitant]
     Active Substance: AZATHIOPRINE
  14. POTASSIUM [Concomitant]
     Active Substance: POTASSIUM
  15. TRACLEER [Concomitant]
     Active Substance: BOSENTAN

REACTIONS (1)
  - Pneumonia [None]
